FAERS Safety Report 7604929-2 (Version None)
Quarter: 2011Q3

REPORT INFORMATION
  Report Type: 
  Country: None (occurrence: None)
  Receive Date: 20110713
  Receipt Date: 20110705
  Transmission Date: 20111222
  Serious: Yes (Hospitalization, Other)
  Sender: FDA-Public Use
  Company Number: JP-BRISTOL-MYERS SQUIBB COMPANY-14542013

PATIENT
  Age: 68 Year
  Sex: Male

DRUGS (18)
  1. AMLODIPINE BESYLATE [Concomitant]
     Route: 048
  2. ALLOPURINOL [Concomitant]
     Route: 048
     Dates: end: 20090417
  3. ANTIBIOTIC [Concomitant]
     Indication: PROPHYLAXIS
     Route: 048
     Dates: start: 20090624
  4. LACTOMIN [Concomitant]
     Dates: start: 20090223
  5. GLUCOSE + ELECTROLYTES [Concomitant]
     Dosage: SOLUTION
     Dates: start: 20090216, end: 20090223
  6. SODIUM BICARBONATE [Concomitant]
     Dates: start: 20090216, end: 20090223
  7. GAMOFA [Concomitant]
     Indication: PROPHYLAXIS AGAINST GASTROINTESTINAL ULCER
     Dosage: GAMOFA D TAB
     Route: 048
     Dates: start: 20091029
  8. CYTARABINE [Concomitant]
     Dates: start: 20090107, end: 20090201
  9. HYDREA [Concomitant]
     Indication: CHRONIC MYELOID LEUKAEMIA
     Dosage: 500MG*MG/WEEK,500MG/DAY. 28JUL10-24AUG10,06OCT10-16NOV10,17NOV10-13DEC10,15DEC10-28DEC10.
     Dates: start: 20090107
  10. CHLORPHENIRAMINE MALEATE [Concomitant]
     Dates: start: 20090214, end: 20090223
  11. FUROSEMIDE [Concomitant]
     Route: 042
     Dates: start: 20090214, end: 20090314
  12. MUCOSTA [Concomitant]
     Indication: PROPHYLAXIS AGAINST GASTROINTESTINAL ULCER
     Dosage: 28FEB09-03MAR09 29OCT09-ONG
     Route: 048
     Dates: start: 20090228
  13. PROCHLORPERAZINE [Concomitant]
     Indication: PROPHYLAXIS OF NAUSEA AND VOMITING
     Route: 048
     Dates: start: 20110209
  14. POTASSIUM ASPARTATE [Concomitant]
     Dosage: POTASSIUM L-ASPARTATE
     Route: 048
     Dates: start: 20090228, end: 20090303
  15. SPRYCEL [Suspect]
     Indication: CHRONIC MYELOID LEUKAEMIA
     Dosage: 12FEB-31MAR09,48D 140MG INTRPD ON 8APR09(56D)8D;14APR 50MG 2XD 12MAY09 60MG 2XD 28OCT09-ONG
     Route: 048
     Dates: start: 20090212
  16. SILODOSIN [Concomitant]
     Dosage: 17APR09,24JUN09
     Route: 048
     Dates: start: 20090624
  17. LANSOPRAZOLE [Concomitant]
     Indication: PROPHYLAXIS AGAINST GASTROINTESTINAL ULCER
     Dosage: TAKEPRON OD TAB
     Route: 048
     Dates: end: 20091028
  18. ALBUMIN TANNATE [Suspect]
     Route: 048
     Dates: end: 20090417

REACTIONS (14)
  - PLATELET COUNT DECREASED [None]
  - PLEURAL EFFUSION [None]
  - RHINORRHOEA [None]
  - BLOOD CREATININE INCREASED [None]
  - PERIPHERAL SENSORY NEUROPATHY [None]
  - NEUTROPHIL COUNT DECREASED [None]
  - GENERALISED OEDEMA [None]
  - BLOOD ALKALINE PHOSPHATASE INCREASED [None]
  - GASTROENTERITIS [None]
  - WHITE BLOOD CELL COUNT DECREASED [None]
  - ILEUS PARALYTIC [None]
  - TUMOUR LYSIS SYNDROME [None]
  - ANAEMIA [None]
  - HYPERURICAEMIA [None]
